FAERS Safety Report 21187743 (Version 1)
Quarter: 2022Q3

REPORT INFORMATION
  Report Type: Report from Study
  Country: JP (occurrence: JP)
  Receive Date: 20220809
  Receipt Date: 20220809
  Transmission Date: 20221027
  Serious: Yes (Death)
  Sender: FDA-Public Use
  Company Number: JP-BAYER-2022A109156

PATIENT
  Age: 69 Year
  Sex: Male

DRUGS (13)
  1. VENTAVIS [Suspect]
     Active Substance: ILOPROST
     Indication: Pulmonary arterial hypertension
     Dosage: 2.5 UG, TID
     Route: 055
     Dates: start: 20200302, end: 20200304
  2. VENTAVIS [Suspect]
     Active Substance: ILOPROST
     Dosage: 2.5 UG, 6ID
     Route: 055
     Dates: start: 20200305, end: 20200307
  3. VENTAVIS [Suspect]
     Active Substance: ILOPROST
     Dosage: 5 UG, 6ID
     Route: 055
     Dates: start: 20200308, end: 20200310
  4. VENTAVIS [Suspect]
     Active Substance: ILOPROST
     Dosage: 2.5 UG, 6ID
     Route: 055
     Dates: start: 20200311, end: 20200524
  5. VENTAVIS [Suspect]
     Active Substance: ILOPROST
     Dosage: 5 UG, 6ID
     Route: 055
     Dates: start: 20200525
  6. VENTAVIS [Suspect]
     Active Substance: ILOPROST
     Dosage: 2.5 UG, 6ID
     Route: 055
     Dates: end: 20210805
  7. ASPIRIN [Concomitant]
     Active Substance: ASPIRIN
     Route: 048
  8. GLYCOPYRRONIUM\INDACATEROL [Concomitant]
     Active Substance: GLYCOPYRRONIUM\INDACATEROL
     Route: 055
  9. APO LANSOPRAZOLE ODT [Concomitant]
     Indication: Prophylaxis
     Route: 048
  10. PITAVASTATIN CALCIUM [Concomitant]
     Active Substance: PITAVASTATIN CALCIUM
     Route: 048
  11. OMEGA-3-ACID ETHYL ESTERS [Concomitant]
     Active Substance: OMEGA-3-ACID ETHYL ESTERS
     Route: 048
  12. MAGNESIUM OXIDE [Concomitant]
     Active Substance: MAGNESIUM OXIDE
     Route: 048
  13. OXYGEN [Concomitant]
     Active Substance: OXYGEN
     Indication: Pulmonary arterial hypertension
     Dosage: UNK
     Dates: start: 20210817, end: 20210817

REACTIONS (1)
  - Death [Fatal]
